FAERS Safety Report 5794459-5 (Version None)
Quarter: 2008Q2

REPORT INFORMATION
  Report Type: 
  Country: None (occurrence: None)
  Receive Date: 20080630
  Receipt Date: 20080616
  Transmission Date: 20081010
  Serious: Yes (Other)
  Sender: FDA-Public Use
  Company Number: PHHY2008GB11635

PATIENT
  Age: 85 Year
  Sex: Female

DRUGS (1)
  1. ESTRADERM [Suspect]
     Route: 062

REACTIONS (1)
  - BLOOD PRESSURE INCREASED [None]
